FAERS Safety Report 8523676-6 (Version None)
Quarter: 2012Q3

REPORT INFORMATION
  Report Type: 
  Country: None (occurrence: None)
  Receive Date: 20120720
  Receipt Date: 20120713
  Transmission Date: 20120928
  Serious: Yes (Other)
  Sender: FDA-Public Use
  Company Number: HU-PFIZER INC-2012171816

PATIENT
  Age: 72 Year
  Sex: Female
  Weight: 63 kg

DRUGS (15)
  1. ALLOPURINOL [Concomitant]
     Dosage: UNK
  2. KERBERAN [Concomitant]
     Dosage: UNK
  3. NEO-FERRO [Concomitant]
     Dosage: UNK
  4. TALLITON [Concomitant]
     Dosage: UNK
  5. THIOGAMMA [Concomitant]
     Dosage: UNK
     Dates: start: 20120203, end: 20120301
  6. SIMVASTATIN [Concomitant]
     Dosage: UNK
  7. VITAMIN D [Concomitant]
     Dosage: UNK
  8. VALSARTAN [Concomitant]
     Dosage: UNK
  9. LYRICA [Suspect]
     Indication: NEURALGIA
     Dosage: 150 MG, 2X/DAY
     Dates: start: 20120203, end: 20120301
  10. AMLODIPINE [Concomitant]
     Dosage: UNK
  11. HYZAAR [Concomitant]
     Dosage: UNK
  12. JANUVIA [Concomitant]
     Dosage: UNK
  13. METFORMIN HCL [Concomitant]
     Dosage: UNK
  14. RIFAXIMIN [Concomitant]
     Dosage: UNK
  15. ZIR-GASTRO [Concomitant]
     Dosage: UNK

REACTIONS (6)
  - MENTAL IMPAIRMENT [None]
  - TREMOR [None]
  - DEAFNESS [None]
  - BLINDNESS [None]
  - HYPOAESTHESIA [None]
  - CONSTIPATION [None]
